FAERS Safety Report 16334466 (Version 7)
Quarter: 2020Q3

REPORT INFORMATION
  Report Type: Spontaneous
  Country: IT (occurrence: IT)
  Receive Date: 20190520
  Receipt Date: 20200903
  Transmission Date: 20201102
  Serious: Yes (Life-Threatening, Hospitalization, Other)
  Sender: FDA-Public Use
  Company Number: PHHY2019IT103181

PATIENT
  Age: 65 Year
  Sex: Male

DRUGS (1)
  1. IMATINIB. [Suspect]
     Active Substance: IMATINIB MESYLATE
     Indication: GASTROINTESTINAL STROMAL TUMOUR
     Dosage: 400 MG, QD
     Route: 048

REACTIONS (10)
  - Posture abnormal [Recovered/Resolved]
  - Myasthenia gravis [Recovered/Resolved]
  - Eyelid ptosis [Recovered/Resolved]
  - Dysphagia [Unknown]
  - Atonic seizures [Recovered/Resolved]
  - Masticatory pain [Recovered/Resolved]
  - Dropped head syndrome [Recovered/Resolved]
  - Neuromyopathy [Recovered/Resolved]
  - Dysphonia [Recovered/Resolved]
  - Respiratory failure [Recovered/Resolved]
